FAERS Safety Report 9652470 (Version 6)
Quarter: 2014Q2

REPORT INFORMATION
  Report Type: Spontaneous
  Country: US (occurrence: US)
  Receive Date: 20131029
  Receipt Date: 20140626
  Transmission Date: 20141212
  Serious: Yes (Hospitalization, Other)
  Sender: FDA-Public Use
  Company Number: US-009507513-1310USA010693

PATIENT
  Sex: Female
  Weight: 83.67 kg

DRUGS (5)
  1. FOSAMAX [Suspect]
     Indication: OSTEOPOROSIS
     Dosage: 70 MG, QW
     Route: 048
     Dates: start: 200105, end: 200505
  2. FOSAMAX [Suspect]
     Dosage: 35 MG, QW
     Route: 048
     Dates: start: 20050210, end: 20070509
  3. FOSAMAX PLUS D [Suspect]
     Indication: OSTEOPOROSIS
     Dosage: 70 MG/ 5600 MG, QW
     Route: 048
     Dates: start: 200505, end: 201103
  4. FOSAMAX PLUS D [Suspect]
     Dosage: ONE TAB QD
     Route: 048
  5. ALENDRONATE SODIUM [Suspect]
     Dosage: 70 MG, QW
     Route: 048
     Dates: start: 20080529

REACTIONS (13)
  - Femur fracture [Recovering/Resolving]
  - Intramedullary rod insertion [Unknown]
  - Renal failure acute [Unknown]
  - Impaired healing [Unknown]
  - Osteopenia [Unknown]
  - Hypothyroidism [Unknown]
  - Hypertension [Unknown]
  - Hypercholesterolaemia [Unknown]
  - Localised infection [Recovered/Resolved]
  - Arthropathy [Unknown]
  - Haemorrhagic anaemia [Unknown]
  - Inappropriate schedule of drug administration [Unknown]
  - Gastrooesophageal reflux disease [Unknown]
